FAERS Safety Report 19181832 (Version 4)
Quarter: 2023Q1

REPORT INFORMATION
  Report Type: Report from Study
  Country: GB (occurrence: GB)
  Receive Date: 20210426
  Receipt Date: 20230120
  Transmission Date: 20230418
  Serious: Yes (Death, Hospitalization, Other)
  Sender: FDA-Public Use
  Company Number: None

PATIENT
  Age: 66 Year
  Sex: Male
  Weight: 172.8 kg

DRUGS (27)
  1. CYCLOPHOSPHAMIDE [Suspect]
     Active Substance: CYCLOPHOSPHAMIDE
     Indication: Small cell lung cancer extensive stage
     Dosage: UNK
     Route: 065
     Dates: start: 20210204
  2. DOXORUBICIN [Suspect]
     Active Substance: DOXORUBICIN
     Indication: Small cell lung cancer extensive stage
     Dosage: UNK
     Route: 065
     Dates: start: 20210204
  3. ATEZOLIZUMAB [Suspect]
     Active Substance: ATEZOLIZUMAB
     Indication: Small cell lung cancer extensive stage
     Dosage: 1200 MG, Q3WEEKS, DOSE OF LAST ATEZOLIZUMAB ADMINISTERED PRIOR TO AE/SAE ONSET 1200 MG ON 14/JAN/202
     Route: 041
     Dates: start: 20200728
  4. ATEZOLIZUMAB [Suspect]
     Active Substance: ATEZOLIZUMAB
     Dosage: 1200 MG, Q3WEEKS, FIRST DOSE OF 2ND LINE THERAPY
     Route: 042
     Dates: start: 20210204
  5. ATEZOLIZUMAB [Suspect]
     Active Substance: ATEZOLIZUMAB
     Dosage: 1200 MG, Q3WEEKS
     Route: 042
     Dates: start: 20200818
  6. ATEZOLIZUMAB [Suspect]
     Active Substance: ATEZOLIZUMAB
     Dosage: 1200 MG, Q4WEEKS
     Route: 042
     Dates: start: 20201001
  7. ATEZOLIZUMAB [Suspect]
     Active Substance: ATEZOLIZUMAB
     Dosage: 1200 MG, Q4WEEKS
     Route: 042
     Dates: start: 20200910
  8. ATEZOLIZUMAB [Suspect]
     Active Substance: ATEZOLIZUMAB
     Dosage: 1200 MG, Q3WEEKS
     Route: 042
     Dates: start: 20201203
  9. ATEZOLIZUMAB [Suspect]
     Active Substance: ATEZOLIZUMAB
     Dosage: 1200 MG, Q3WEEKS
     Route: 042
     Dates: start: 20201224
  10. ATEZOLIZUMAB [Suspect]
     Active Substance: ATEZOLIZUMAB
     Dosage: 1200 MG, Q3WEEKS
     Route: 042
     Dates: start: 20201022
  11. ATEZOLIZUMAB [Suspect]
     Active Substance: ATEZOLIZUMAB
     Dosage: 1200 MG, Q3WEEKS
     Route: 042
     Dates: start: 20210114
  12. ATEZOLIZUMAB [Suspect]
     Active Substance: ATEZOLIZUMAB
     Dosage: 1200 MG, Q3WEEKS
     Route: 042
     Dates: start: 20201112
  13. CARBOPLATIN [Suspect]
     Active Substance: CARBOPLATIN
     Indication: Small cell lung cancer extensive stage
     Dosage: 630 MG, PM
     Route: 065
     Dates: start: 20200818
  14. ETOPOSIDE [Suspect]
     Active Substance: ETOPOSIDE
     Indication: Small cell lung cancer extensive stage
     Dosage: EVERY 0.5 DAY; BID
     Route: 065
     Dates: start: 20200819
  15. ETOPOSIDE [Suspect]
     Active Substance: ETOPOSIDE
     Dosage: 220 MG; PM
     Route: 042
     Dates: start: 20200818
  16. VINCRISTINE [Suspect]
     Active Substance: VINCRISTINE
     Indication: Small cell lung cancer extensive stage
     Dosage: UNK
     Route: 065
     Dates: start: 20210204
  17. CHLORPHENIRAMINE MALEATE [Concomitant]
     Active Substance: CHLORPHENIRAMINE MALEATE
     Indication: Product used for unknown indication
     Dosage: 10 MG, PM
     Route: 065
     Dates: start: 20200728, end: 20200728
  18. DEXAMETHASONE [Concomitant]
     Active Substance: DEXAMETHASONE
     Indication: Product used for unknown indication
     Dosage: 8 MG, PM
     Route: 065
     Dates: start: 20200910, end: 20200910
  19. DEXAMETHASONE [Concomitant]
     Active Substance: DEXAMETHASONE
     Dosage: 8 MG, PM
     Route: 065
     Dates: start: 20201001, end: 20201001
  20. FILGRASTIM [Concomitant]
     Active Substance: FILGRASTIM
     Indication: Neutrophil count decreased
     Dosage: AS NECESSARY
     Route: 065
     Dates: start: 202007
  21. METOCLOPRAMIDE [Concomitant]
     Active Substance: METOCLOPRAMIDE
     Indication: Product used for unknown indication
     Dosage: AS NECESSARY
     Route: 065
     Dates: start: 202007
  22. METOCLOPRAMIDE [Concomitant]
     Active Substance: METOCLOPRAMIDE
     Dosage: AS NECESSARY
     Route: 065
  23. ONDANSETRON [Concomitant]
     Active Substance: ONDANSETRON
     Indication: Product used for unknown indication
     Dosage: 8 MG
     Route: 065
     Dates: start: 20201001, end: 20201001
  24. ONDANSETRON [Concomitant]
     Active Substance: ONDANSETRON
     Dosage: AS NECESSARY
     Route: 065
     Dates: start: 202007
  25. ONDANSETRON [Concomitant]
     Active Substance: ONDANSETRON
     Dosage: 8 MG
     Route: 065
     Dates: start: 20200818, end: 20200818
  26. AMOXICILLIN\CLAVULANATE POTASSIUM [Concomitant]
     Active Substance: AMOXICILLIN\CLAVULANATE POTASSIUM
     Indication: Product used for unknown indication
     Dosage: EVERY 0.5 DAY; BID
     Route: 065
     Dates: start: 20210210, end: 20210212
  27. DOXYCYCLINE [Concomitant]
     Active Substance: DOXYCYCLINE
     Indication: Product used for unknown indication
     Dosage: QD
     Route: 065
     Dates: start: 20210212, end: 20210212

REACTIONS (3)
  - Death [Fatal]
  - Pneumonia [Recovered/Resolved with Sequelae]
  - Lower respiratory tract infection [Recovering/Resolving]

NARRATIVE: CASE EVENT DATE: 20210209
